FAERS Safety Report 7151484-X (Version None)
Quarter: 2010Q4

REPORT INFORMATION
  Report Type: 
  Country: None (occurrence: None)
  Receive Date: 20101210
  Receipt Date: 20101129
  Transmission Date: 20110411
  Serious: Yes (Hospitalization)
  Sender: FDA-Public Use
  Company Number: US-ROCHE-745251

PATIENT
  Sex: Male
  Weight: 79.2 kg

DRUGS (4)
  1. TOCILIZUMAB [Suspect]
     Indication: RHEUMATOID ARTHRITIS
     Dosage: LAST DOSE PRIOR TO SAE: 04 NOVEMBER 2010; TEMPORARILY INTERRUPTED
     Route: 042
     Dates: start: 20061108
  2. TOCILIZUMAB [Suspect]
     Dosage: PATIENT COMPLETED A DOUBLE BLINDED MRA CORE STUDY WA17824, CENTRE NO: 51188, RANDOMISATION O: 310607
     Route: 042
  3. METHOTREXATE [Concomitant]
     Dates: start: 20061206
  4. LEVOTHYROXINE SODIUM [Concomitant]
     Dates: start: 20101008

REACTIONS (1)
  - MYOCARDIAL INFARCTION [None]
